FAERS Safety Report 16370859 (Version 1)
Quarter: 2019Q2

REPORT INFORMATION
  Report Type: Spontaneous
  Country: US (occurrence: US)
  Receive Date: 20190530
  Receipt Date: 20190530
  Transmission Date: 20190711
  Serious: No
  Sender: FDA-Public Use
  Company Number: US-BAYER-2019-105199

PATIENT
  Age: 63 Year
  Sex: Male
  Weight: 102 kg

DRUGS (2)
  1. CBD OIL [Concomitant]
     Active Substance: CANNABIDIOL\HERBALS
  2. MIRALAX [Suspect]
     Active Substance: POLYETHYLENE GLYCOL 3350
     Indication: GASTROINTESTINAL DISORDER
     Dosage: 1 HEAPING CAPFUL
     Route: 048
     Dates: start: 20190522

REACTIONS (4)
  - Incorrect product administration duration [Unknown]
  - Extra dose administered [Unknown]
  - Drug ineffective [Unknown]
  - Wrong technique in product usage process [Unknown]

NARRATIVE: CASE EVENT DATE: 20190522
